FAERS Safety Report 5265108-X (Version None)
Quarter: 2007Q1

REPORT INFORMATION
  Report Type: 
  Country: None (occurrence: None)
  Receive Date: 20070314
  Receipt Date: 20070313
  Transmission Date: 20070707
  Serious: Yes (Hospitalization, Other)
  Sender: FDA-Public Use
  Company Number: US-BRISTOL-MYERS SQUIBB COMPANY-13711551

PATIENT
  Age: 52 Year
  Sex: Male
  Weight: 70 kg

DRUGS (2)
  1. CISPLATIN [Suspect]
     Indication: SQUAMOUS CELL CARCINOMA
     Dates: start: 20061101, end: 20061101
  2. RADIATION THERAPY [Suspect]
     Indication: SQUAMOUS CELL CARCINOMA
     Dates: start: 20051205, end: 20051205

REACTIONS (11)
  - ANOREXIA [None]
  - BLOOD CREATININE [None]
  - CONSTIPATION [None]
  - DEHYDRATION [None]
  - DYSPHAGIA [None]
  - DYSPNOEA [None]
  - HYPOALBUMINAEMIA [None]
  - HYPOKALAEMIA [None]
  - HYPOMAGNESAEMIA [None]
  - MUCOSAL INFLAMMATION [None]
  - WHITE BLOOD CELL COUNT DECREASED [None]
